FAERS Safety Report 9382313 (Version 1)
Quarter: 2013Q3

REPORT INFORMATION
  Report Type: Report from Study
  Country: US (occurrence: US)
  Receive Date: 20130703
  Receipt Date: 20130703
  Transmission Date: 20140515
  Serious: Yes (Hospitalization)
  Sender: FDA-Public Use
  Company Number: US-ASTRAZENECA-2013SE48673

PATIENT
  Age: 50 Year
  Sex: Male
  Weight: 68 kg

DRUGS (6)
  1. SEROQUEL [Suspect]
     Indication: BIPOLAR DISORDER
     Route: 048
     Dates: end: 2012
  2. SEROQUEL [Suspect]
     Indication: BIPOLAR DISORDER
     Route: 048
     Dates: start: 2012
  3. CLONAZEPAM [Concomitant]
     Route: 048
     Dates: start: 2012
  4. TRIPTYLINE [Concomitant]
     Route: 048
     Dates: start: 2012
  5. LITHIUM CARBONATE [Concomitant]
     Route: 048
     Dates: start: 2012
  6. PROVASTATIN [Concomitant]
     Route: 048
     Dates: start: 2012

REACTIONS (8)
  - Mania [Unknown]
  - Mental disorder [Unknown]
  - Cardiac disorder [Unknown]
  - Chest discomfort [Unknown]
  - Chest pain [Unknown]
  - Drug ineffective [Unknown]
  - Bipolar disorder [Unknown]
  - Off label use [Unknown]
